FAERS Safety Report 16227778 (Version 1)
Quarter: 2019Q2

REPORT INFORMATION
  Report Type: Report from Study
  Country: GB (occurrence: GB)
  Receive Date: 20190423
  Receipt Date: 20190423
  Transmission Date: 20190711
  Serious: Yes (Other)
  Sender: FDA-Public Use
  Company Number: PHHY2019GB092692

PATIENT
  Sex: Female

DRUGS (1)
  1. HYRIMOZ [Suspect]
     Active Substance: ADALIMUMAB-ADAZ
     Indication: COLITIS ULCERATIVE
     Dosage: 40 MG, FORTNIGHTLY (PRE-FILLEN PEN)
     Route: 058
     Dates: start: 20190123

REACTIONS (4)
  - Condition aggravated [Recovering/Resolving]
  - Night sweats [Unknown]
  - Inflammatory bowel disease [Recovering/Resolving]
  - Mood swings [Unknown]
